FAERS Safety Report 8126863-4 (Version None)
Quarter: 2012Q1

REPORT INFORMATION
  Report Type: 
  Country: None (occurrence: None)
  Receive Date: 20120210
  Receipt Date: 20120202
  Transmission Date: 20120608
  Serious: No
  Sender: FDA-Public Use
  Company Number: US-PFIZER INC-2012032715

PATIENT

DRUGS (1)
  1. POTASSIUM PENICILLIN G [Suspect]

REACTIONS (1)
  - DRUG HYPERSENSITIVITY [None]
